FAERS Safety Report 26172457 (Version 1)
Quarter: 2025Q4

REPORT INFORMATION
  Report Type: Spontaneous
  Country: PE (occurrence: PE)
  Receive Date: 20251218
  Receipt Date: 20251218
  Transmission Date: 20260117
  Serious: Yes (Hospitalization)
  Sender: BIOVITRUM
  Company Number: PE-BIOVITRUM-2025-PE-017689

PATIENT
  Age: 6 Year
  Sex: Male

DRUGS (2)
  1. ORFADIN [Suspect]
     Active Substance: NITISINONE
     Indication: Product used for unknown indication
     Dates: start: 202112, end: 202312
  2. ORFADIN [Suspect]
     Active Substance: NITISINONE
     Dates: start: 202312

REACTIONS (2)
  - Liver transplant [Recovering/Resolving]
  - Condition aggravated [Unknown]
